FAERS Safety Report 22910661 (Version 3)
Quarter: 2023Q4

REPORT INFORMATION
  Report Type: Report from Study
  Country: GB (occurrence: GB)
  Receive Date: 20230906
  Receipt Date: 20231003
  Transmission Date: 20240110
  Serious: Yes (Hospitalization)
  Sender: FDA-Public Use
  Company Number: GB-JAZZ PHARMACEUTICALS-2023-GB-018606

PATIENT
  Sex: Female
  Weight: 78.7 kg

DRUGS (8)
  1. LURBINECTEDIN [Suspect]
     Active Substance: LURBINECTEDIN
     Indication: Small cell lung cancer
     Dosage: 2.0 MILLIGRAM/SQ. METER
     Route: 042
     Dates: start: 20230817, end: 20230817
  2. IRINOTECAN [Suspect]
     Active Substance: IRINOTECAN
     Indication: Small cell lung cancer
     Dosage: 75 MILLIGRAM/SQ. METER, D1D8Q3W
     Route: 042
     Dates: start: 20230817, end: 20230817
  3. DEXAMETHASONE [Concomitant]
     Active Substance: DEXAMETHASONE
     Indication: Prophylaxis of nausea and vomiting
     Dosage: 8 MILLIGRAM
     Route: 042
     Dates: start: 20230817, end: 20230817
  4. ONDANSETRON [Concomitant]
     Active Substance: ONDANSETRON
     Indication: Prophylaxis of nausea and vomiting
     Dosage: 8 MILLIGRAM
     Route: 042
     Dates: start: 20230817, end: 20230817
  5. FILGRASTIM [Concomitant]
     Active Substance: FILGRASTIM
     Dosage: 30 MEGA-INTERNATIONAL UNIT
     Route: 058
     Dates: start: 20230819, end: 20230823
  6. ATORVASTATIN [Concomitant]
     Active Substance: ATORVASTATIN
     Dosage: UNK
  7. OMEPRAZOLE [Concomitant]
     Active Substance: OMEPRAZOLE
     Dosage: UNK
  8. METFORMIN [Concomitant]
     Active Substance: METFORMIN HYDROCHLORIDE
     Dosage: UNK

REACTIONS (1)
  - Neutropenic infection [Recovered/Resolved]

NARRATIVE: CASE EVENT DATE: 20230823
